FAERS Safety Report 17436147 (Version 1)
Quarter: 2020Q1

REPORT INFORMATION
  Report Type: Spontaneous
  Country: BR (occurrence: BR)
  Receive Date: 20200219
  Receipt Date: 20200219
  Transmission Date: 20200409
  Serious: Yes (Other)
  Sender: FDA-Public Use
  Company Number: BR-SHIRE-BR202006181

PATIENT

DRUGS (9)
  1. ATENOLOL. [Concomitant]
     Active Substance: ATENOLOL
     Indication: HYPERTENSION
  2. DRENATAN [Concomitant]
     Active Substance: LATANOPROST
     Indication: GLAUCOMA
  3. NEOVITE LUTEIN [Concomitant]
     Indication: EYE DISORDER
  4. AZULFIDINE [Concomitant]
     Active Substance: SULFASALAZINE
     Indication: ULCER
  5. MESACOL MMX [Suspect]
     Active Substance: MESALAMINE
     Indication: GASTROINTESTINAL INFLAMMATION
     Dosage: 2400 MILLIGRAM, 1X/DAY:QD
     Route: 048
     Dates: start: 2019
  6. LOSARTAN. [Concomitant]
     Active Substance: LOSARTAN
     Indication: HYPERTENSION
  7. HYDROCHLOROTHIAZIDE. [Concomitant]
     Active Substance: HYDROCHLOROTHIAZIDE
     Indication: HYPERTENSION
  8. DUO-TRAVATAN [Concomitant]
     Active Substance: TIMOLOL MALEATE\TRAVOPROST
     Indication: GLAUCOMA
  9. AZULFIDINE [Concomitant]
     Active Substance: SULFASALAZINE
     Indication: GASTROINTESTINAL INFLAMMATION

REACTIONS (4)
  - Product use in unapproved indication [Unknown]
  - Muscular weakness [Recovered/Resolved]
  - Glaucoma [Unknown]
  - Drug dependence [Unknown]

NARRATIVE: CASE EVENT DATE: 2019
